FAERS Safety Report 23345576 (Version 1)
Quarter: 2023Q4

REPORT INFORMATION
  Report Type: Spontaneous
  Country: EG (occurrence: EG)
  Receive Date: 20231228
  Receipt Date: 20231228
  Transmission Date: 20240110
  Serious: Yes (Other)
  Sender: FDA-Public Use
  Company Number: EG-PFIZER INC-PV202300150759

PATIENT
  Age: 38 Year
  Sex: Female

DRUGS (8)
  1. ENBREL [Suspect]
     Active Substance: ETANERCEPT
     Indication: Rheumatoid arthritis
     Dosage: 1 DOSAGE FORM, QWK
     Route: 058
     Dates: start: 20230807
  2. METHOTREXATE [Concomitant]
     Active Substance: METHOTREXATE
     Dosage: 15 MILLIGRAM
  3. METHOTREXATE [Concomitant]
     Active Substance: METHOTREXATE
     Dosage: 3 DOSAGE FORM, 2 TIMES/WK
  4. FOLIC ACID [Concomitant]
     Active Substance: FOLIC ACID
     Dosage: 1 DOSAGE FORM, QD
  5. Solupred [Concomitant]
     Dosage: 1 DOSAGE FORM, BID
  6. BONECARE [Concomitant]
     Dosage: 1 DOSAGE FORM, QD
  7. FASTCURE [Concomitant]
     Dosage: 1 DOSAGE FORM
  8. TENOXICAM [Concomitant]
     Active Substance: TENOXICAM
     Dosage: 1 DOSAGE FORM, AS NEEDED

REACTIONS (3)
  - Pyrexia [Unknown]
  - Pneumonia [Unknown]
  - Influenza [Unknown]

NARRATIVE: CASE EVENT DATE: 20230101
